FAERS Safety Report 12723974 (Version 1)
Quarter: 2016Q3

REPORT INFORMATION
  Report Type: Spontaneous
  Country: US (occurrence: None)
  Receive Date: 20160907
  Receipt Date: 20160907
  Transmission Date: 20161109
  Serious: Yes (Hospitalization)
  Sender: FDA-Public Use
  Company Number: US-ALSI-201600233

PATIENT
  Age: 6 Month
  Sex: Female

DRUGS (5)
  1. ROCURONIUM [Concomitant]
     Active Substance: ROCURONIUM BROMIDE
  2. NITROUS OXIDE (MEDICINAL) (NITROUS OXIDE) [Suspect]
     Active Substance: NITROUS OXIDE
     Indication: GENERAL ANAESTHESIA
     Route: 055
  3. OXYGEN (MEDICINAL) INHALATION GAS (OXYGEN) [Concomitant]
  4. ISOFLURANE. [Concomitant]
     Active Substance: ISOFLURANE
  5. MORPHINE [Concomitant]
     Active Substance: MORPHINE

REACTIONS (8)
  - Amino acid level increased [None]
  - Nervous system disorder [None]
  - Vitamin B12 deficiency [None]
  - Homocysteine urine present [None]
  - Developmental delay [None]
  - Cerebral atrophy [None]
  - Haemoglobin decreased [None]
  - Cystine urine present [None]
